FAERS Safety Report 20269413 (Version 1)
Quarter: 2022Q1

REPORT INFORMATION
  Report Type: Spontaneous
  Country: US (occurrence: US)
  Receive Date: 20220101
  Receipt Date: 20220101
  Transmission Date: 20220423
  Serious: Yes (Hospitalization, Other)
  Sender: FDA-Public Use
  Company Number: US-AUROBINDO-AUR-APL-2021-053463

PATIENT
  Age: 62 Year
  Sex: Male

DRUGS (5)
  1. CLOZAPINE [Suspect]
     Active Substance: CLOZAPINE
     Indication: Schizophrenia
     Dosage: 400 MILLIGRAM, ONCE A DAY
     Route: 065
  2. TOZINAMERAN [Concomitant]
     Active Substance: TOZINAMERAN
     Indication: Product used for unknown indication
     Dosage: UNK (1ST DOSE)
     Route: 065
     Dates: start: 202101
  3. TOZINAMERAN [Concomitant]
     Active Substance: TOZINAMERAN
     Dosage: UNK (2ND DOSE)
     Route: 065
     Dates: start: 202102
  4. DIVALPROEX SODIUM [Concomitant]
     Active Substance: DIVALPROEX SODIUM
     Indication: Product used for unknown indication
     Dosage: UNK
     Route: 065
  5. ACETAMINOPHEN [Concomitant]
     Active Substance: ACETAMINOPHEN
     Indication: Product used for unknown indication
     Dosage: 650 MILLIGRAM
     Route: 065

REACTIONS (1)
  - Generalised tonic-clonic seizure [Unknown]
